FAERS Safety Report 9418049 (Version 1)
Quarter: 2013Q3

REPORT INFORMATION
  Report Type: Spontaneous
  Country: US (occurrence: US)
  Receive Date: 20130724
  Receipt Date: 20130724
  Transmission Date: 20140515
  Serious: No
  Sender: FDA-Public Use
  Company Number: US-009507513-1307USA011267

PATIENT
  Sex: Female

DRUGS (1)
  1. NUVARING [Suspect]
     Dosage: .015/.12 MG 3 STANDARD DOSES OF 1
     Route: 067

REACTIONS (2)
  - Adverse event [Not Recovered/Not Resolved]
  - Poor quality drug administered [Unknown]
